FAERS Safety Report 5232335-7 (Version None)
Quarter: 2007Q1

REPORT INFORMATION
  Report Type: 
  Country: None (occurrence: None)
  Receive Date: 20070207
  Receipt Date: 20070124
  Transmission Date: 20070707
  Serious: Yes (Other)
  Sender: FDA-Public Use
  Company Number: US-AMGEN-US208461

PATIENT
  Sex: Female

DRUGS (2)
  1. ENBREL [Suspect]
     Indication: ANKYLOSING SPONDYLITIS
     Route: 058
     Dates: start: 20060101
  2. REMICADE [Concomitant]

REACTIONS (3)
  - ANAPHYLACTIC SHOCK [None]
  - ANKYLOSING SPONDYLITIS [None]
  - SCLERITIS [None]
